FAERS Safety Report 7060245-1 (Version None)
Quarter: 2010Q4

REPORT INFORMATION
  Report Type: 
  Country: None (occurrence: None)
  Receive Date: 20101025
  Receipt Date: 20101018
  Transmission Date: 20110411
  Serious: Yes (Hospitalization, Other)
  Sender: FDA-Public Use
  Company Number: CH-BRISTOL-MYERS SQUIBB COMPANY-15342629

PATIENT
  Age: 37 Year
  Sex: Male

DRUGS (3)
  1. ABILIFY [Suspect]
     Dosage: 20MG(05MAY10)DOSE REDUCED: 10MG:6-19MAY10;;5MG:20-30MAY10;10MG:31MAY10; 20MG:1-9JUN10 10MG:10JUN10
     Route: 048
     Dates: start: 20080101
  2. AKINETON [Concomitant]
  3. LAMICTAL [Concomitant]
     Route: 048

REACTIONS (7)
  - AGGRESSION [None]
  - CHILLS [None]
  - HALLUCINATION [None]
  - IRRITABILITY [None]
  - MOVEMENT DISORDER [None]
  - RESTLESSNESS [None]
  - SCHIZOAFFECTIVE DISORDER [None]
